FAERS Safety Report 9769677 (Version 2)
Quarter: 2013Q4

REPORT INFORMATION
  Report Type: Spontaneous
  Country: US (occurrence: US)
  Receive Date: 20131218
  Receipt Date: 20131218
  Transmission Date: 20140711
  Serious: No
  Sender: FDA-Public Use
  Company Number: US-VERTEX PHARMACEUTICALS INC-AE-2011-000364

PATIENT
  Age: 66 Year
  Sex: 0
  Weight: 109.9 kg

DRUGS (3)
  1. INCIVEK [Suspect]
     Indication: HEPATITIS C
     Dates: start: 20110624
  2. RIBASPHERE [Concomitant]
     Indication: HEPATITIS C
     Dates: start: 20110624
  3. INTERFERON [Concomitant]
     Indication: HEPATITIS C
     Dates: start: 20110624

REACTIONS (7)
  - Dizziness [Not Recovered/Not Resolved]
  - Balance disorder [Not Recovered/Not Resolved]
  - Feeling drunk [Not Recovered/Not Resolved]
  - Gait disturbance [Not Recovered/Not Resolved]
  - Asthenia [Not Recovered/Not Resolved]
  - Decreased appetite [Not Recovered/Not Resolved]
  - Rash pruritic [Not Recovered/Not Resolved]
